FAERS Safety Report 21230621 (Version 1)
Quarter: 2022Q3

REPORT INFORMATION
  Report Type: Report from Study
  Country: US (occurrence: US)
  Receive Date: 20220818
  Receipt Date: 20220818
  Transmission Date: 20221026
  Serious: Yes (Other)
  Sender: FDA-Public Use
  Company Number: US-TEVA-2022-US-2064369

PATIENT
  Age: 54 Year
  Sex: Female

DRUGS (2)
  1. IDARUBICIN [Suspect]
     Active Substance: IDARUBICIN
     Indication: Acute myeloid leukaemia
     Route: 065
  2. NIVOLUMAB [Suspect]
     Active Substance: NIVOLUMAB
     Indication: Acute myeloid leukaemia
     Dosage: 12 CYCLES
     Route: 065

REACTIONS (1)
  - Pneumonitis [Recovered/Resolved]
